FAERS Safety Report 9118616 (Version 1)
Quarter: 2013Q1

REPORT INFORMATION
  Report Type: Spontaneous
  Country: US (occurrence: None)
  Receive Date: 20130130
  Receipt Date: 20130130
  Transmission Date: 20140127
  Serious: Yes (Other)
  Sender: FDA-Public Use
  Company Number: UTC-028357

PATIENT
  Age: 73 Year
  Sex: Female

DRUGS (2)
  1. REMODULIN [Suspect]
     Indication: PRODUCT USED FOR UNKNOWN INDICATION
  2. LETAIRIS (AMBRISENTAN) TABLET [Concomitant]

REACTIONS (1)
  - Osteoarthritis [None]
